FAERS Safety Report 9745035 (Version 2)
Quarter: 2014Q1

REPORT INFORMATION
  Report Type: Spontaneous
  Country: US (occurrence: US)
  Receive Date: 20131211
  Receipt Date: 20140120
  Transmission Date: 20141002
  Serious: No
  Sender: FDA-Public Use
  Company Number: US-JNJFOC-20131117404

PATIENT
  Age: 79 Year
  Sex: Female

DRUGS (6)
  1. SANDOZ FENTANYL TRANSDERMAL SYSTEM [Suspect]
     Indication: PAIN IN EXTREMITY
     Route: 062
     Dates: start: 201310
  2. METFORMIN [Concomitant]
     Indication: DIABETES MELLITUS
     Route: 048
     Dates: start: 1990
  3. HUMALOG [Concomitant]
     Indication: DIABETES MELLITUS
     Dosage: 4 UNITS IN THE MORNING
     Route: 058
     Dates: start: 2013
  4. LANTUS [Concomitant]
     Indication: DIABETES MELLITUS
     Dosage: SLIDING SCALE (32-40 U) IN THE EVENING
     Route: 058
     Dates: start: 2013
  5. JANUVIA [Concomitant]
     Route: 048
  6. LOSARTAN [Concomitant]
     Route: 048

REACTIONS (3)
  - Poor quality drug administered [Not Recovered/Not Resolved]
  - Product physical issue [Unknown]
  - Product quality issue [Unknown]
